FAERS Safety Report 18258397 (Version 1)
Quarter: 2020Q3

REPORT INFORMATION
  Report Type: Other
  Country: US (occurrence: US)
  Receive Date: 20200911
  Receipt Date: 20200911
  Transmission Date: 20201103
  Serious: No
  Sender: FDA-Public Use
  Company Number: US-LEADIANT BIOSCIENCES INC-2019STPI000536

PATIENT

DRUGS (9)
  1. GRANISETRON [Concomitant]
     Active Substance: GRANISETRON
  2. ACETAZOLAMIDE. [Concomitant]
     Active Substance: ACETAZOLAMIDE
  3. PROMETHAZINE [Concomitant]
     Active Substance: PROMETHAZINE HYDROCHLORIDE
  4. SCOPOLAMINE HYDROBROMIDE. [Concomitant]
     Active Substance: SCOPOLAMINE HYDROBROMIDE
  5. LORAZEPAM. [Concomitant]
     Active Substance: LORAZEPAM
  6. TABLOID [Concomitant]
     Active Substance: THIOGUANINE
  7. GLEOSTINE [Concomitant]
     Active Substance: LOMUSTINE
  8. MATULANE [Suspect]
     Active Substance: PROCARBAZINE HYDROCHLORIDE
     Indication: CEREBRAL DISORDER
     Dosage: 100 MILLIGRAM, Q6H
     Route: 048
     Dates: start: 20190802
  9. SULFAMETHOXAZOLE [Concomitant]
     Active Substance: SULFAMETHOXAZOLE

REACTIONS (1)
  - Nausea [Not Recovered/Not Resolved]
